FAERS Safety Report 8372466-6 (Version None)
Quarter: 2012Q2

REPORT INFORMATION
  Report Type: 
  Country: None (occurrence: None)
  Receive Date: 20120521
  Receipt Date: 20120514
  Transmission Date: 20120825
  Serious: Yes (Death)
  Sender: FDA-Public Use
  Company Number: DE-UCBSA-048882

PATIENT
  Age: 17 Year
  Sex: Female
  Weight: 60 kg

DRUGS (9)
  1. LEVETIRACETAM [Suspect]
     Route: 048
     Dates: start: 20110919, end: 20111031
  2. CLONAZEPAM [Suspect]
     Indication: EPILEPSY
     Route: 048
     Dates: start: 20111214, end: 20120101
  3. LEVETIRACETAM [Suspect]
     Indication: EPILEPSY
     Route: 048
     Dates: start: 20111215, end: 20120101
  4. VIMPAT [Suspect]
     Dosage: 50MG
     Dates: start: 20111130, end: 20111213
  5. LEVETIRACETAM [Suspect]
     Route: 048
     Dates: start: 20110817, end: 20110918
  6. VIMPAT [Suspect]
     Indication: EPILEPSY
     Dosage: 100MG IN MORNING
     Route: 048
     Dates: start: 20111214, end: 20120101
  7. LEVETIRACETAM [Suspect]
     Dosage: 250/500 MG
     Route: 048
     Dates: start: 20111130, end: 20111214
  8. LEVETIRACETAM [Suspect]
     Dosage: 250/1000 MG
     Route: 048
     Dates: start: 20111123, end: 20111129
  9. LEVETIRACETAM [Suspect]
     Dosage: 500/1000 MG
     Route: 048
     Dates: start: 20111101, end: 20111123

REACTIONS (2)
  - AGGRESSION [None]
  - DEATH [None]
